FAERS Safety Report 9406555 (Version 1)
Quarter: 2013Q3

REPORT INFORMATION
  Report Type: Spontaneous
  Country: SE (occurrence: SE)
  Receive Date: 20130718
  Receipt Date: 20130718
  Transmission Date: 20140515
  Serious: Yes (Death)
  Sender: FDA-Public Use
  Company Number: SE-RANBAXY-2013R1-71293

PATIENT
  Age: 54 Year
  Sex: Male

DRUGS (3)
  1. METFORMIN [Suspect]
     Indication: PRODUCT USED FOR UNKNOWN INDICATION
     Route: 065
  2. METOPROLOL [Suspect]
     Indication: PRODUCT USED FOR UNKNOWN INDICATION
     Route: 065
  3. VERAPAMIL [Suspect]
     Indication: PRODUCT USED FOR UNKNOWN INDICATION
     Route: 065

REACTIONS (7)
  - Arrhythmia [Fatal]
  - Hypotension [Fatal]
  - Circulatory collapse [Fatal]
  - Sepsis [Fatal]
  - Hepatic failure [Fatal]
  - Lactic acidosis [Fatal]
  - Renal failure [Fatal]
